FAERS Safety Report 4597620-0 (Version None)
Quarter: 2005Q1

REPORT INFORMATION
  Report Type: 
  Country: None (occurrence: None)
  Receive Date: 20050228
  Receipt Date: 20050228
  Transmission Date: 20050727
  Serious: Yes (Other)
  Sender: FDA-Public Use
  Company Number: None

PATIENT
  Age: 47 Year
  Sex: Male
  Weight: 113.3993 kg

DRUGS (1)
  1. COLD EEZE QUIGLEY CORP. [Suspect]
     Dosage: 1      ONCE   NASAL
     Route: 045

REACTIONS (6)
  - AGEUSIA [None]
  - APPLICATION SITE IRRITATION [None]
  - FEELING ABNORMAL [None]
  - NASAL DISORDER [None]
  - PAROSMIA [None]
  - RHINORRHOEA [None]
